FAERS Safety Report 11192494 (Version 1)
Quarter: 2015Q2

REPORT INFORMATION
  Report Type: Spontaneous
  Country: JP (occurrence: JP)
  Receive Date: 20150616
  Receipt Date: 20150616
  Transmission Date: 20150821
  Serious: Yes (Hospitalization)
  Sender: FDA-Public Use
  Company Number: JP-PFIZER INC-2015200222

PATIENT
  Age: 29 Year
  Sex: Female

DRUGS (1)
  1. CABERGOLINE. [Suspect]
     Active Substance: CABERGOLINE
     Indication: LACTATION PUERPERAL INCREASED
     Dosage: UNK
     Route: 048

REACTIONS (2)
  - Headache [Unknown]
  - Gastrointestinal disorder [Unknown]
